FAERS Safety Report 8660279 (Version 3)
Quarter: 2012Q4

REPORT INFORMATION
  Report Type: Report from Study
  Country: DE (occurrence: DE)
  Receive Date: 20120711
  Receipt Date: 20121129
  Transmission Date: 20130627
  Serious: Yes (Hospitalization)
  Sender: FDA-Public Use
  Company Number: DE-GLAXOSMITHKLINE-B0813683A

PATIENT
  Age: 46 Year
  Sex: Female
  Weight: 57 kg

DRUGS (5)
  1. TOPOTECAN [Suspect]
     Indication: OVARIAN CANCER RECURRENT
     Dosage: 1.25MG Three times per week
     Route: 042
     Dates: start: 20120514
  2. BLINDED TRIAL MEDICATION [Suspect]
     Indication: OVARIAN CANCER RECURRENT
     Dosage: 400MG Per day
     Route: 048
     Dates: start: 20120514
  3. PANTOZOL [Concomitant]
     Indication: DYSPEPSIA
     Dosage: 40MG Per day
     Route: 048
     Dates: start: 20120702, end: 20120702
  4. CIPROBAY [Concomitant]
     Indication: PROPHYLAXIS
     Dosage: 800MG Per day
     Route: 042
     Dates: start: 20120702, end: 20120702
  5. FRAGMIN P [Concomitant]
     Indication: THROMBOSIS PROPHYLAXIS
     Dosage: 2.5UNIT Per day
     Route: 058
     Dates: start: 20120702, end: 20120702

REACTIONS (2)
  - Thrombocytosis [Recovered/Resolved]
  - Ascites [Recovered/Resolved]
